FAERS Safety Report 5864055-X (Version None)
Quarter: 2008Q3

REPORT INFORMATION
  Report Type: 
  Country: None (occurrence: None)
  Receive Date: 20080829
  Receipt Date: 20080818
  Transmission Date: 20090109
  Serious: Yes (Death, Other)
  Sender: FDA-Public Use
  Company Number: US-BAYER-200825809NA

PATIENT
  Age: 53 Year
  Sex: Male

DRUGS (13)
  1. AVELOX [Suspect]
     Indication: BRONCHITIS
     Dosage: TOTAL DAILY DOSE: 400 MG  UNIT DOSE: 400 MG
     Route: 048
     Dates: start: 20080611, end: 20080611
  2. CELLCEPT [Concomitant]
  3. NEURONTIN [Concomitant]
  4. SYNTHROID [Concomitant]
  5. PREDNISONE TAB [Concomitant]
  6. DIOVAN [Concomitant]
  7. NEORAL [Concomitant]
  8. PAXIL [Concomitant]
  9. LASIX [Concomitant]
  10. VITAMIN D [Concomitant]
  11. MAGNESIUM OXIDE [Concomitant]
  12. ZETIA [Concomitant]
  13. ALBUTEROL [Concomitant]

REACTIONS (3)
  - ABDOMINAL PAIN [None]
  - CARDIO-RESPIRATORY ARREST [None]
  - DEATH [None]
